FAERS Safety Report 25096083 (Version 3)
Quarter: 2025Q4

REPORT INFORMATION
  Report Type: Spontaneous
  Country: EU (occurrence: EU)
  Receive Date: 20250319
  Receipt Date: 20251107
  Transmission Date: 20260117
  Serious: Yes (Other)
  Sender: NOVARTIS
  Company Number: EU-002147023-NVSC2025BE043908

PATIENT
  Age: 72 Year
  Sex: Male

DRUGS (4)
  1. BEOVU [Suspect]
     Active Substance: BROLUCIZUMAB-DBLL
     Indication: Product used for unknown indication
     Dosage: UNK (3 INJECTION IN RIGHT EYE) (4 WEEKS)
     Route: 031
  2. BEOVU [Suspect]
     Active Substance: BROLUCIZUMAB-DBLL
     Dosage: UNK (INTERVAL OF 9 WEEKS)
     Route: 065
     Dates: start: 202105
  3. EYLEA [Suspect]
     Active Substance: AFLIBERCEPT
     Indication: Product used for unknown indication
     Dosage: UNK (2 INJECTION) (RE) (INTERVAL OF 4 WEEKS)
     Route: 031
  4. EYLEA [Suspect]
     Active Substance: AFLIBERCEPT
     Dosage: UNK (1 INJECTION) (LE) (INTERVAL OF 8 WEEKS)
     Route: 031

REACTIONS (2)
  - Retinal detachment [Unknown]
  - Disease recurrence [Unknown]
